FAERS Safety Report 8236547-X (Version None)
Quarter: 2012Q1

REPORT INFORMATION
  Report Type: 
  Country: None (occurrence: None)
  Receive Date: 20120327
  Receipt Date: 20120319
  Transmission Date: 20120608
  Serious: Yes (Death, Other)
  Sender: FDA-Public Use
  Company Number: US-CELGENEUS-163-C5013-12020432

PATIENT
  Sex: Male
  Weight: 109.9 kg

DRUGS (74)
  1. THALIDOMIDE [Suspect]
     Dosage: 200 MILLIGRAM
     Route: 048
     Dates: start: 20101005, end: 20101010
  2. THALIDOMIDE [Suspect]
     Dosage: 50 MILLIGRAM
     Route: 048
     Dates: start: 20110524, end: 20110620
  3. MELPHALAN HYDROCHLORIDE [Suspect]
     Dosage: 6 MILLIGRAM
     Route: 065
     Dates: start: 20110531, end: 20110603
  4. PREDNISONE TAB [Suspect]
     Dosage: 230 MILLIGRAM
     Route: 065
     Dates: start: 20101116, end: 20101119
  5. LISINOPRIL [Concomitant]
     Indication: HYPERTENSION
     Dosage: 10 MILLIGRAM
     Route: 048
     Dates: start: 20060101
  6. ZOMETA [Concomitant]
     Dosage: 3.3 MILLIGRAM
     Route: 041
     Dates: start: 20101228
  7. COLCHICINE [Concomitant]
     Dosage: .6 MILLIGRAM
     Route: 048
     Dates: start: 20110511, end: 20110511
  8. DARBEPOETIN ALFA-ALBUMIN [Concomitant]
     Dosage: 300 MICROGRAM
     Route: 058
     Dates: start: 20101207
  9. NEUREMEDY [Concomitant]
     Indication: DIABETIC NEUROPATHY
     Dosage: 150 MILLIGRAM
     Route: 048
     Dates: start: 20111007, end: 20111204
  10. MELPHALAN HYDROCHLORIDE [Suspect]
     Dosage: 14 MILLIGRAM
     Route: 065
     Dates: start: 20110222, end: 20110225
  11. PREDNISONE TAB [Suspect]
     Dosage: 225 MILLIGRAM
     Route: 065
     Dates: start: 20110412, end: 20110415
  12. PREDNISONE TAB [Suspect]
     Dosage: 215 MILLIGRAM
     Route: 065
     Dates: start: 20110830, end: 20110902
  13. PREDNISONE TAB [Suspect]
     Dosage: 215 MILLIGRAM
     Route: 065
     Dates: start: 20111018, end: 20111021
  14. FUROSEMIDE [Concomitant]
     Dosage: 40 MILLIGRAM
     Route: 048
     Dates: start: 20101130, end: 20101201
  15. METOPROLOL SUCCINATE [Concomitant]
     Indication: HYPERTENSION
     Dosage: 50 MILLIGRAM
     Route: 048
     Dates: start: 20060101, end: 20110207
  16. ACETAMINOPHEN [Concomitant]
     Dosage: 500 MILLIGRAM
     Route: 048
     Dates: start: 20100901
  17. CALCIUM CARBONATE [Concomitant]
     Dosage: 1250 MILLIGRAM
     Route: 048
     Dates: start: 20101208
  18. LORAZEPAM [Concomitant]
     Indication: SEDATION
     Dosage: 1 MILLIGRAM
     Route: 041
     Dates: start: 20120113, end: 20120113
  19. THALIDOMIDE [Suspect]
     Dosage: 200 MILLIGRAM
     Route: 048
     Dates: start: 20100914, end: 20100928
  20. MELPHALAN HYDROCHLORIDE [Suspect]
     Dosage: 24 MILLIGRAM
     Route: 065
     Dates: start: 20101005, end: 20101008
  21. MELPHALAN HYDROCHLORIDE [Suspect]
     Dosage: 24 MILLIGRAM
     Route: 065
     Dates: start: 20110104, end: 20110107
  22. GLYBURIDE [Concomitant]
     Dosage: 10 MILLIGRAM
     Route: 048
     Dates: start: 20080227, end: 20110101
  23. FUROSEMIDE [Concomitant]
     Dosage: 40 MILLIGRAM
     Route: 048
     Dates: start: 20101117, end: 20101129
  24. FUROSEMIDE [Concomitant]
     Dosage: 40 MILLIGRAM
     Route: 048
     Dates: start: 20101202, end: 20110413
  25. WARFARIN SODIUM [Concomitant]
     Indication: PROPHYLAXIS
     Dosage: 7.5-10MG
     Route: 048
     Dates: start: 20070508, end: 20120202
  26. CALCIUM CARBONATE [Concomitant]
     Route: 048
     Dates: start: 20101102, end: 20101207
  27. COLCHICINE [Concomitant]
     Indication: GOUT
     Dosage: .6 MILLIGRAM
     Route: 048
     Dates: start: 20101030, end: 20101031
  28. MULTI-VITAMINS [Concomitant]
     Indication: VITAMIN SUPPLEMENTATION
     Dosage: 1 TABLET
     Route: 048
     Dates: start: 20100101
  29. MEDROL [Concomitant]
     Indication: GOUT
     Dosage: 4 MILLIGRAM
     Route: 048
     Dates: start: 20110512, end: 20110515
  30. PREGABALIN [Concomitant]
     Dosage: 50 MILLIGRAM
     Route: 048
     Dates: start: 20111205, end: 20111215
  31. THALIDOMIDE [Suspect]
     Dosage: 100 MILLIGRAM
     Route: 048
     Dates: start: 20110503, end: 20110523
  32. PREDNISONE TAB [Suspect]
     Dosage: 230 MILLIGRAM
     Route: 065
     Dates: start: 20101005, end: 20101008
  33. PREDNISONE TAB [Suspect]
     Dosage: 210 MILLIGRAM
     Route: 065
     Dates: start: 20110712, end: 20110715
  34. POTASSIUM CHLORIDE [Concomitant]
     Dosage: 20 MILLIEQUIVALENTS
     Route: 048
     Dates: start: 20060101, end: 20101122
  35. POTASSIUM CHLORIDE [Concomitant]
     Dosage: 20 MILLIEQUIVALENTS
     Route: 048
     Dates: start: 20101123, end: 20110713
  36. ZOMETA [Concomitant]
     Indication: BONE DISORDER
     Dosage: 4 MILLIGRAM
     Route: 041
     Dates: start: 20100824, end: 20101012
  37. VICODIN [Concomitant]
     Indication: BACK PAIN
     Route: 048
     Dates: start: 20100907
  38. COLCHICINE [Concomitant]
     Dosage: .6 MILLIGRAM
     Route: 048
     Dates: start: 20101207, end: 20101208
  39. COLCHICINE [Concomitant]
     Dosage: .6 MILLIGRAM
     Route: 048
     Dates: start: 20110731, end: 20110801
  40. ATIVAN [Concomitant]
     Indication: NAUSEA
     Dosage: .5 MILLIGRAM
     Route: 048
     Dates: start: 20101209, end: 20101214
  41. GABAPENTIN [Concomitant]
     Dosage: 100 MILLIGRAM
     Route: 048
     Dates: start: 20110802, end: 20110811
  42. FISH OIL [Concomitant]
     Dosage: 1000 MILLIGRAM
     Route: 048
     Dates: start: 20100101
  43. THALIDOMIDE [Suspect]
     Dosage: 200 MILLIGRAM
     Route: 048
     Dates: start: 20101012, end: 20101129
  44. MELPHALAN HYDROCHLORIDE [Suspect]
     Dosage: 24 MILLIGRAM
     Route: 065
     Dates: start: 20101116, end: 20101119
  45. MELPHALAN HYDROCHLORIDE [Suspect]
     Dosage: 4 MILLIGRAM
     Route: 065
     Dates: start: 20110830, end: 20110902
  46. PREDNISONE TAB [Suspect]
     Indication: MULTIPLE MYELOMA
     Dosage: 230 MILLIGRAM
     Route: 065
     Dates: start: 20100824, end: 20100827
  47. FUROSEMIDE [Concomitant]
     Dosage: 40 MILLIGRAM
     Route: 048
     Dates: start: 20101007, end: 20101116
  48. METFORMIN HCL [Concomitant]
     Dosage: 1000 MILLIGRAM
     Route: 048
     Dates: start: 20060101, end: 20110526
  49. CALCIUM CARBONATE [Concomitant]
     Route: 048
     Dates: start: 20101027, end: 20101101
  50. COLCHICINE [Concomitant]
     Dosage: 4 MILLIGRAM
     Route: 048
     Dates: start: 20110512, end: 20110515
  51. GABAPENTIN [Concomitant]
     Indication: DIABETIC NEUROPATHY
     Dosage: 100 MILLIGRAM
     Route: 048
     Dates: start: 20110722, end: 20110724
  52. ACYCLOVIR [Concomitant]
     Indication: PROPHYLAXIS
  53. INFLUENZA VACCINE [Concomitant]
     Dosage: .5 MILLILITER
     Route: 030
     Dates: start: 20111018, end: 20111018
  54. THALIDOMIDE [Suspect]
     Indication: MULTIPLE MYELOMA
     Dosage: 200 MILLIGRAM
     Route: 048
     Dates: start: 20100824, end: 20100906
  55. MELPHALAN HYDROCHLORIDE [Suspect]
     Dosage: 4 MILLIGRAM
     Route: 065
     Dates: start: 20111018, end: 20111021
  56. PREDNISONE TAB [Suspect]
     Dosage: 225 MILLIGRAM
     Route: 065
     Dates: start: 20110104, end: 20110107
  57. PREDNISONE TAB [Suspect]
     Dosage: 215 MILLIGRAM
     Route: 065
     Dates: start: 20110531, end: 20110603
  58. GLYBURIDE [Concomitant]
     Dosage: 2.5 MILLIGRAM
     Route: 048
     Dates: start: 20080227, end: 20110101
  59. FUROSEMIDE [Concomitant]
     Dosage: 40 MILLIGRAM
     Route: 048
     Dates: start: 20060101, end: 20100929
  60. FUROSEMIDE [Concomitant]
     Dosage: 40 MILLIGRAM/MILLILITERS
     Route: 048
     Dates: start: 20100930, end: 20101006
  61. GABAPENTIN [Concomitant]
     Dosage: 100 MILLIGRAM
     Route: 048
     Dates: start: 20110725, end: 20110801
  62. PROCHLORPERAZINE MALEATE [Concomitant]
     Indication: NAUSEA
     Dosage: 10 MILLIGRAM
     Route: 048
     Dates: start: 20101207, end: 20101214
  63. MELPHALAN HYDROCHLORIDE [Suspect]
     Indication: MULTIPLE MYELOMA
     Dosage: 24 MILLIGRAM
     Route: 065
     Dates: start: 20100824, end: 20100827
  64. MELPHALAN HYDROCHLORIDE [Suspect]
     Dosage: 14 MILLIGRAM
     Route: 065
     Dates: start: 20110412, end: 20110415
  65. MIRALAX [Concomitant]
     Indication: CONSTIPATION
     Route: 048
     Dates: start: 20100907
  66. GLIPIZIDE [Concomitant]
     Dosage: 10 MILLIGRAM
     Route: 048
     Dates: start: 20110527
  67. GABAPENTIN [Concomitant]
     Dosage: 300 MILLIGRAM
     Route: 048
     Dates: start: 20110812, end: 20111009
  68. THALIDOMIDE [Suspect]
     Dosage: 200 MILLIGRAM
     Route: 048
     Dates: start: 20101207, end: 20110502
  69. MELPHALAN HYDROCHLORIDE [Suspect]
     Dosage: 6 MILLIGRAM
     Route: 065
     Dates: start: 20110712, end: 20110715
  70. FUROSEMIDE [Concomitant]
     Dosage: 20 MILLIGRAM
     Route: 041
     Dates: start: 20100908, end: 20100908
  71. FUROSEMIDE [Concomitant]
     Dosage: 80 MILLIGRAM
     Route: 048
     Dates: start: 20100930, end: 20101006
  72. EQUATE STOOL SOFTENER [Concomitant]
     Indication: CONSTIPATION
     Dosage: 100 MILLIGRAM
     Route: 048
     Dates: start: 20100907
  73. ACYCLOVIR [Concomitant]
     Dosage: 200 MILLIGRAM
     Route: 048
     Dates: start: 20110413
  74. CIPROFLOXACIN HCL [Concomitant]
     Indication: INFECTION
     Dosage: 500 MILLIGRAM
     Route: 048
     Dates: start: 20111001, end: 20111005

REACTIONS (1)
  - MYELODYSPLASTIC SYNDROME [None]
